APPROVED DRUG PRODUCT: "HY-PAM ""25"""
Active Ingredient: HYDROXYZINE PAMOATE
Strength: EQ 25MG HYDROCHLORIDE
Dosage Form/Route: CAPSULE;ORAL
Application: A088713 | Product #001
Applicant: TEVA PHARMACEUTICALS USA INC
Approved: Mar 4, 1985 | RLD: No | RS: No | Type: DISCN